FAERS Safety Report 15627008 (Version 1)
Quarter: 2018Q4

REPORT INFORMATION
  Report Type: Spontaneous
  Country: US (occurrence: US)
  Receive Date: 20181116
  Receipt Date: 20181116
  Transmission Date: 20190205
  Serious: Yes (Hospitalization)
  Sender: FDA-Public Use
  Company Number: None

PATIENT
  Age: 37 Week
  Sex: Male
  Weight: 91.7 kg

DRUGS (1)
  1. VYVANSE [Suspect]
     Active Substance: LISDEXAMFETAMINE DIMESYLATE
     Indication: ATTENTION DEFICIT/HYPERACTIVITY DISORDER
     Route: 048
     Dates: start: 20181114, end: 20181114

REACTIONS (3)
  - Chromaturia [None]
  - Muscle spasms [None]
  - Rhabdomyolysis [None]

NARRATIVE: CASE EVENT DATE: 20181114
